FAERS Safety Report 8454673-7 (Version None)
Quarter: 2012Q2

REPORT INFORMATION
  Report Type: 
  Country: None (occurrence: None)
  Receive Date: 20120615
  Receipt Date: 20120615
  Transmission Date: 20120825
  Serious: Yes (Other)
  Sender: FDA-Public Use
  Company Number: None

PATIENT
  Age: 76 Year
  Sex: Female
  Weight: 58.514 kg

DRUGS (2)
  1. ALENDRONATE SODIUM [Suspect]
     Indication: BONE DENSITY ABNORMAL
     Dosage: 1 TABLET EVERY WEEK MOUTH
     Route: 048
     Dates: start: 20120227, end: 20120523
  2. ALENDRONATE SODIUM [Suspect]
     Indication: BONE DENSITY ABNORMAL
     Dosage: 1 TABLET EVERY WEEK MOUTH
     Route: 048
     Dates: start: 20110719, end: 20111004

REACTIONS (11)
  - DYSPEPSIA [None]
  - DIARRHOEA [None]
  - TRISMUS [None]
  - MIGRAINE [None]
  - NAUSEA [None]
  - BONE PAIN [None]
  - MYALGIA [None]
  - HIP FRACTURE [None]
  - ABDOMINAL PAIN UPPER [None]
  - ARTHRALGIA [None]
  - DYSPHAGIA [None]
